FAERS Safety Report 6451222-X (Version None)
Quarter: 2009Q4

REPORT INFORMATION
  Report Type: 
  Country: None (occurrence: None)
  Receive Date: 20091120
  Receipt Date: 20091120
  Transmission Date: 20100525
  Serious: Yes (Hospitalization)
  Sender: FDA-Public Use
  Company Number: None

PATIENT
  Sex: Female
  Weight: 88.2 kg

DRUGS (2)
  1. CISPLATIN [Suspect]
     Dosage: 147 MG
  2. PEMETREXED [Suspect]
     Dosage: 980 MG

REACTIONS (3)
  - EPIGASTRIC DISCOMFORT [None]
  - OESOPHAGEAL CANDIDIASIS [None]
  - PANCYTOPENIA [None]
